FAERS Safety Report 4741536-3 (Version None)
Quarter: 2005Q3

REPORT INFORMATION
  Report Type: 
  Country: None (occurrence: None)
  Receive Date: 20050808
  Receipt Date: 20050726
  Transmission Date: 20060218
  Serious: Yes (Hospitalization, Other)
  Sender: FDA-Public Use
  Company Number: 216434

PATIENT
  Age: 71 Year
  Sex: Male

DRUGS (3)
  1. MABTHERA(RITUXIMAB) CONC FOR SOLUTION FOR INFUSION [Suspect]
     Indication: LYMPHOMA
     Dosage: 635 MG, INTRAVENOUS
     Route: 042
     Dates: start: 20050309, end: 20050309
  2. MITOXANTRONE (MITOXANTRON HYDROCHLORIDE) [Suspect]
     Indication: LYMPHOMA
     Dosage: 10 MG, INTRAVENOUS
     Route: 042
     Dates: start: 20050309, end: 20050309
  3. CYCLOPHOSPHAMIDE [Suspect]
     Indication: LYMPHOMA
     Dosage: 340 MG, INTRAVENOUS
     Route: 042
     Dates: start: 20050309, end: 20050311

REACTIONS (1)
  - AGRANULOCYTOSIS [None]
